FAERS Safety Report 17048106 (Version 2)
Quarter: 2019Q4

REPORT INFORMATION
  Report Type: Spontaneous
  Country: US (occurrence: US)
  Receive Date: 20191119
  Receipt Date: 20191212
  Transmission Date: 20200122
  Serious: No
  Sender: FDA-Public Use
  Company Number: US-PFIZER INC-2019397944

PATIENT
  Age: 29 Year
  Sex: Female

DRUGS (2)
  1. VITAMIN D [Suspect]
     Active Substance: VITAMIN D NOS
     Dosage: UNK
  2. IBRANCE [Suspect]
     Active Substance: PALBOCICLIB
     Indication: BREAST CANCER FEMALE
     Dosage: 125 MG, CYCLIC (ONCE DAILY, 21 DAYS ON/7 DAYS OFF)
     Route: 048

REACTIONS (2)
  - Headache [Unknown]
  - Product dose omission [Unknown]
